FAERS Safety Report 16453264 (Version 2)
Quarter: 2019Q2

REPORT INFORMATION
  Report Type: Spontaneous
  Country: FR (occurrence: FR)
  Receive Date: 20190619
  Receipt Date: 20190627
  Transmission Date: 20190711
  Serious: No
  Sender: FDA-Public Use
  Company Number: FR-NAPPMUNDI-GBR-2019-0067298

PATIENT
  Age: 55 Year
  Sex: Female
  Weight: 70 kg

DRUGS (2)
  1. BETAMETHASONE. [Suspect]
     Active Substance: BETAMETHASONE
     Indication: SCIATICA
     Dosage: 7 MG, DAILY
     Route: 048
     Dates: start: 20190505, end: 20190515
  2. MORPHINE SULFATE. [Suspect]
     Active Substance: MORPHINE SULFATE
     Indication: SCIATICA
     Dosage: UNK
     Route: 048
     Dates: start: 20190505, end: 20190513

REACTIONS (4)
  - Tremor [Recovered/Resolved]
  - Insomnia [Unknown]
  - Hallucination [Recovered/Resolved]
  - Erythema [Unknown]

NARRATIVE: CASE EVENT DATE: 20190505
